FAERS Safety Report 4399628-7 (Version None)
Quarter: 2004Q3

REPORT INFORMATION
  Report Type: 
  Country: None (occurrence: None)
  Receive Date: 20040712
  Receipt Date: 20040708
  Transmission Date: 20050211
  Serious: Yes (Other)
  Sender: FDA-Public Use
  Company Number: 04-07-0970

PATIENT
  Age: 66 Year
  Sex: Female
  Weight: 64 kg

DRUGS (5)
  1. TAMOXIFENE CITRATE [Suspect]
     Indication: BREAST CANCER
     Dosage: 20MG ORAL
     Route: 048
     Dates: start: 20040602
  2. SIMVSTATIN [Concomitant]
  3. ISOSORBIDE MONONITRATE MR [Concomitant]
  4. IRON SULFATETHIAMIN COMPOUND TAB [Concomitant]
  5. FUROSEMIDE [Concomitant]

REACTIONS (2)
  - DIABETES MELLITUS [None]
  - DISEASE RECURRENCE [None]
